FAERS Safety Report 5199260-1 (Version None)
Quarter: 2007Q1

REPORT INFORMATION
  Report Type: 
  Country: None (occurrence: None)
  Receive Date: 20070104
  Receipt Date: 20061227
  Transmission Date: 20070707
  Serious: Yes (Other)
  Sender: FDA-Public Use
  Company Number: US-PFIZER INC-2007000059

PATIENT
  Sex: Male

DRUGS (1)
  1. DILANTIN [Suspect]
     Indication: CONVULSION
     Dosage: DAILY DOSE:360MG-FREQ:AT BEDTIME
     Route: 048

REACTIONS (2)
  - CONVULSION [None]
  - DRUG LEVEL BELOW THERAPEUTIC [None]
